FAERS Safety Report 14943571 (Version 1)
Quarter: 2018Q2

REPORT INFORMATION
  Report Type: Report from Study
  Country: IN (occurrence: IN)
  Receive Date: 20180528
  Receipt Date: 20180528
  Transmission Date: 20180711
  Serious: Yes (Death)
  Sender: FDA-Public Use
  Company Number: PHHY2018IN009540

PATIENT
  Age: 63 Year
  Sex: Female

DRUGS (1)
  1. NEORAL [Suspect]
     Active Substance: CYCLOSPORINE
     Indication: RENAL TRANSPLANT
     Dosage: 0.25 ML, BID
     Route: 065
     Dates: start: 19980502

REACTIONS (1)
  - Death [Fatal]

NARRATIVE: CASE EVENT DATE: 20180506
